FAERS Safety Report 24459280 (Version 1)
Quarter: 2024Q4

REPORT INFORMATION
  Report Type: Spontaneous
  Country: JP (occurrence: JP)
  Receive Date: 20241018
  Receipt Date: 20241018
  Transmission Date: 20250114
  Serious: Yes (Death, Other)
  Sender: ROCHE
  Company Number: JP-PMDA-i2410002450001

PATIENT
  Age: 53 Year
  Sex: Female
  Weight: 44.4 kg

DRUGS (6)
  1. AVASTIN [Suspect]
     Active Substance: BEVACIZUMAB
     Indication: Cervix carcinoma
     Dosage: 660 MILLIGRAM, SINGLE
     Route: 042
     Dates: start: 20240522, end: 20240522
  2. LENOGRASTIM [Suspect]
     Active Substance: LENOGRASTIM
     Indication: Product used for unknown indication
     Dosage: UNK
     Route: 065
  3. PACLITAXEL [Suspect]
     Active Substance: PACLITAXEL
     Indication: Cervix carcinoma
     Dosage: 230 MILLIGRAM, SINGLE
     Route: 042
     Dates: start: 20240522, end: 20240522
  4. CARBOPLATIN [Suspect]
     Active Substance: CARBOPLATIN
     Indication: Cervix carcinoma
     Dosage: 470 MILLIGRAM, SINGLE
     Route: 042
     Dates: start: 20240522, end: 20240522
  5. KEYTRUDA [Suspect]
     Active Substance: PEMBROLIZUMAB
     Indication: Cervix carcinoma
     Route: 042
     Dates: start: 20240522, end: 20240522
  6. CALONAL [Concomitant]
     Active Substance: ACETAMINOPHEN
     Dosage: UNK
     Route: 050
     Dates: end: 20240525

REACTIONS (7)
  - Disseminated intravascular coagulation [Fatal]
  - Septic shock [Fatal]
  - Haemorrhagic cerebral infarction [Fatal]
  - Brain herniation [Unknown]
  - Subarachnoid haemorrhage [Unknown]
  - Myelosuppression [Unknown]
  - Disease progression [Fatal]

NARRATIVE: CASE EVENT DATE: 20240531
